FAERS Safety Report 7018457-9 (Version None)
Quarter: 2010Q3

REPORT INFORMATION
  Report Type: 
  Country: None (occurrence: None)
  Receive Date: 20100923
  Receipt Date: 20100916
  Transmission Date: 20110219
  Serious: Yes (Life-Threatening, Other)
  Sender: FDA-Public Use
  Company Number: VISP-NO-1007S-0370

PATIENT
  Age: 47 Year
  Sex: Male

DRUGS (7)
  1. VISIPAQUE [Suspect]
     Indication: ACUTE CORONARY SYNDROME
     Dosage: 60 ML, SINGLE DOSE, I.A.
     Route: 013
     Dates: start: 20100617, end: 20100617
  2. BIVALIRUDIN [Suspect]
     Dosage: I.V.
     Route: 042
     Dates: start: 20100617, end: 20100617
  3. MIDAZOLAM HYDROCHLORIDE [Suspect]
     Dosage: 2 MG, I.V.
     Route: 042
     Dates: start: 20100617, end: 20100617
  4. PLAVIX [Concomitant]
  5. VERAPAMIL HYDROCHLORIDE (ISOPTINE) [Concomitant]
  6. ISOSORBIDE DINITRATE [Concomitant]
  7. HEPARIN SODIUM [Concomitant]

REACTIONS (2)
  - ANAPHYLACTOID SHOCK [None]
  - ARTERIOSPASM CORONARY [None]
